FAERS Safety Report 12279277 (Version 1)
Quarter: 2016Q2

REPORT INFORMATION
  Report Type: Spontaneous
  Country: US (occurrence: US)
  Receive Date: 20160418
  Receipt Date: 20160418
  Transmission Date: 20160815
  Serious: No
  Sender: FDA-Public Use
  Company Number: US-OTSUKA-2016_002911

PATIENT
  Age: 27 Year
  Sex: Female

DRUGS (1)
  1. REXULTI [Suspect]
     Active Substance: BREXPIPRAZOLE
     Indication: PRODUCT USED FOR UNKNOWN INDICATION
     Dosage: (2 MG, A HALF TABLET), QD
     Route: 065

REACTIONS (3)
  - Trismus [Unknown]
  - Muscle spasms [Unknown]
  - Agitation [Unknown]
